FAERS Safety Report 7634912-2 (Version None)
Quarter: 2011Q3

REPORT INFORMATION
  Report Type: 
  Country: None (occurrence: None)
  Receive Date: 20110726
  Receipt Date: 20110617
  Transmission Date: 20111222
  Serious: Yes (Other)
  Sender: FDA-Public Use
  Company Number: JP-B.I. PHARMACEUTICALS,INC./RIDGEFIELD-2011-BP-14363NB

PATIENT

DRUGS (1)
  1. MICARDIS [Suspect]
     Route: 065

REACTIONS (1)
  - CEREBRAL INFARCTION [None]
